FAERS Safety Report 4334713-7 (Version None)
Quarter: 2004Q2

REPORT INFORMATION
  Report Type: 
  Country: None (occurrence: None)
  Receive Date: 20040407
  Receipt Date: 20040407
  Transmission Date: 20050107
  Serious: Yes (Death)
  Sender: FDA-Public Use
  Company Number: None

PATIENT
  Age: 62 Year
  Sex: Male
  Weight: 64.4108 kg

DRUGS (15)
  1. GEMCITABINE 1500 MG/M2 LILLY [Suspect]
     Indication: PANCREATIC CARCINOMA
     Dosage: 2565 MG ONCE A WEEK INTRAVENOUS
     Route: 042
     Dates: start: 20040316, end: 20040323
  2. GEMCITABINE 1500 MG/M2  LILLY [Suspect]
  3. COMPAZINE [Concomitant]
  4. MORPHINE [Concomitant]
  5. MS CONTIN [Concomitant]
  6. LIPITOR [Concomitant]
  7. NORVASC [Concomitant]
  8. LOPRESSOR [Concomitant]
  9. AMBIEN [Concomitant]
  10. RITALIN [Concomitant]
  11. ZOFRAN [Concomitant]
  12. DILAUDID [Concomitant]
  13. ATIVAN [Concomitant]
  14. PRILOSEC [Concomitant]
  15. DURAGESIC [Concomitant]

REACTIONS (1)
  - DISEASE PROGRESSION [None]
